FAERS Safety Report 8387505-6 (Version None)
Quarter: 2012Q2

REPORT INFORMATION
  Report Type: 
  Country: None (occurrence: None)
  Receive Date: 20120525
  Receipt Date: 20120514
  Transmission Date: 20120825
  Serious: Yes (Other)
  Sender: FDA-Public Use
  Company Number: PHHY2012CN018002

PATIENT
  Age: 35 Year
  Sex: Male

DRUGS (2)
  1. INTERFERON [Interacting]
     Dosage: 3000000 U, Q48H
     Route: 030
  2. TELBIVUDINE [Suspect]
     Indication: HEPATITIS B
     Dosage: 600 MG, QD

REACTIONS (6)
  - MYALGIA [None]
  - BLOOD CREATINE PHOSPHOKINASE INCREASED [None]
  - TENDERNESS [None]
  - NEURALGIA [None]
  - HYPOAESTHESIA [None]
  - FATIGUE [None]
